FAERS Safety Report 19856168 (Version 1)
Quarter: 2021Q3

REPORT INFORMATION
  Report Type: Spontaneous
  Country: CA (occurrence: CA)
  Receive Date: 20210920
  Receipt Date: 20210920
  Transmission Date: 20211014
  Serious: Yes (Life-Threatening)
  Sender: FDA-Public Use
  Company Number: CA-TEVA-2021-CA-1953619

PATIENT
  Age: 42 Year
  Sex: Female

DRUGS (3)
  1. TEVA?PREGABALIN [Suspect]
     Active Substance: PREGABALIN
     Indication: SCIATICA
     Dosage: 50 MILLIGRAM DAILY;
     Route: 048
  2. PANTOLOC [Concomitant]
     Active Substance: PANTOPRAZOLE SODIUM
  3. NAPROXEN. [Concomitant]
     Active Substance: NAPROXEN

REACTIONS (1)
  - Suicide attempt [Recovered/Resolved]
